FAERS Safety Report 23291593 (Version 1)
Quarter: 2023Q4

REPORT INFORMATION
  Report Type: Spontaneous
  Country: RS (occurrence: RS)
  Receive Date: 20231213
  Receipt Date: 20231213
  Transmission Date: 20240109
  Serious: Yes (Other)
  Sender: FDA-Public Use
  Company Number: RS-STRIDES ARCOLAB LIMITED-2023SP018536

PATIENT
  Age: 10 Month
  Sex: Female

DRUGS (2)
  1. PROPRANOLOL [Suspect]
     Active Substance: PROPRANOLOL HYDROCHLORIDE
     Indication: Haemangioma
     Dosage: 3 MILLIGRAM/KILOGRAM PER DAY
     Route: 065
  2. PROPRANOLOL [Suspect]
     Active Substance: PROPRANOLOL HYDROCHLORIDE
     Dosage: 1.5 MILLIGRAM/KILOGRAM PER DAY
     Route: 065

REACTIONS (2)
  - Hypoglycaemic seizure [Recovered/Resolved]
  - Off label use [Unknown]
